FAERS Safety Report 20859120 (Version 2)
Quarter: 2022Q2

REPORT INFORMATION
  Report Type: Spontaneous
  Country: US (occurrence: US)
  Receive Date: 20220523
  Receipt Date: 20220603
  Transmission Date: 20220721
  Serious: Yes (Other)
  Sender: FDA-Public Use
  Company Number: US-AUROBINDO-AUR-APL-2022-017898

PATIENT
  Age: 48 Year
  Sex: Male

DRUGS (9)
  1. CAPECITABINE [Suspect]
     Active Substance: CAPECITABINE
     Indication: Mucinous adenocarcinoma of appendix
     Dosage: UNK, CYCLICAL (2 CYCLES)
     Route: 065
  2. FLUOROURACIL [Suspect]
     Active Substance: FLUOROURACIL
     Indication: Mucinous adenocarcinoma of appendix
     Dosage: UNK, CYCLICAL (5 CYCLES)
     Route: 065
  3. IRINOTECAN HYDROCHLORIDE [Suspect]
     Active Substance: IRINOTECAN HYDROCHLORIDE
     Indication: Metastatic neoplasm
     Dosage: UNK, CYCLICAL (12 CYCLES)
     Route: 065
  4. OXALIPLATIN [Suspect]
     Active Substance: OXALIPLATIN
     Indication: Mucinous adenocarcinoma of appendix
     Dosage: UNK, CYCLICAL (12 CYCLES)
     Route: 065
  5. OXALIPLATIN [Suspect]
     Active Substance: OXALIPLATIN
     Dosage: UNK, CYCLICAL (5CYCLES)
     Route: 065
  6. BEVACIZUMAB [Suspect]
     Active Substance: BEVACIZUMAB
     Indication: Product used for unknown indication
     Dosage: UNK, CYCLICAL (12 CYCLES)
     Route: 065
  7. LEUCOVORIN [Suspect]
     Active Substance: LEUCOVORIN
     Indication: Mucinous adenocarcinoma of appendix
     Dosage: UNK(FIVE CYCLES)
     Route: 065
  8. MITOMYCIN C [Suspect]
     Active Substance: MITOMYCIN
     Indication: Product used for unknown indication
     Dosage: UNK
     Route: 065
  9. PALBOCICLIB [Suspect]
     Active Substance: PALBOCICLIB
     Indication: Product used for unknown indication
     Dosage: 125 MILLIGRAM, ONCE A DAY (FOR 21 DAYS)
     Route: 048

REACTIONS (3)
  - Neuropathy peripheral [Unknown]
  - Atrial fibrillation [Unknown]
  - Drug ineffective [Unknown]
